FAERS Safety Report 8246291-0 (Version None)
Quarter: 2012Q1

REPORT INFORMATION
  Report Type: 
  Country: None (occurrence: None)
  Receive Date: 20120330
  Receipt Date: 20120315
  Transmission Date: 20120608
  Serious: Yes (Other)
  Sender: FDA-Public Use
  Company Number: JP-MYLANLABS-2012S1005884

PATIENT
  Age: 25 Year
  Sex: Male

DRUGS (1)
  1. VANCOMYCIN [Suspect]
     Indication: PYODERMA
     Route: 041
     Dates: start: 20120220, end: 20120229

REACTIONS (2)
  - HEPATIC FUNCTION ABNORMAL [None]
  - ERYTHEMA [None]
